FAERS Safety Report 24299858 (Version 6)
Quarter: 2025Q2

REPORT INFORMATION
  Report Type: Spontaneous
  Country: US (occurrence: US)
  Receive Date: 20240909
  Receipt Date: 20250519
  Transmission Date: 20250716
  Serious: Yes (Hospitalization, Other)
  Sender: SANOFI AVENTIS
  Company Number: US-SA-2024SA258445

PATIENT
  Age: 19 Year
  Sex: Male
  Weight: 56.689 kg

DRUGS (6)
  1. DUPIXENT [Suspect]
     Active Substance: DUPILUMAB
     Indication: Dermatitis atopic
     Dosage: 300 MG, QOW
     Route: 058
     Dates: start: 202309
  2. DUPIXENT [Suspect]
     Active Substance: DUPILUMAB
     Indication: Idiopathic urticaria
  3. TAKHZYRO [Suspect]
     Active Substance: LANADELUMAB-FLYO
  4. ORLADEYO [Suspect]
     Active Substance: BEROTRALSTAT HYDROCHLORIDE
  5. BENLYSTA [Concomitant]
     Active Substance: BELIMUMAB
  6. MYCOPHENOLIC ACID [Concomitant]
     Active Substance: MYCOPHENOLIC ACID

REACTIONS (9)
  - Addison^s disease [Unknown]
  - Adrenal insufficiency [Unknown]
  - Appendicectomy [Unknown]
  - Facial paralysis [Unknown]
  - Weight decreased [Unknown]
  - Cortisol decreased [Unknown]
  - Gastrointestinal disorder [Recovered/Resolved]
  - Viral infection [Unknown]
  - Product use in unapproved indication [Unknown]

NARRATIVE: CASE EVENT DATE: 20230901
